FAERS Safety Report 4985465-9 (Version None)
Quarter: 2006Q2

REPORT INFORMATION
  Report Type: 
  Country: None (occurrence: None)
  Receive Date: 20060428
  Receipt Date: 20050321
  Transmission Date: 20061013
  Serious: No
  Sender: FDA-Public Use
  Company Number: US-GLAXOSMITHKLINE-A0550639A

PATIENT
  Age: 57 Year
  Sex: Female

DRUGS (17)
  1. FLOVENT [Suspect]
     Indication: ASTHMA
     Dosage: 1PUFF TWICE PER DAY
     Route: 055
     Dates: start: 20041216, end: 20050316
  2. SPIRIVA [Suspect]
  3. ALBUTEROL SULFATE AUTOHALER [Suspect]
  4. LANTUS [Concomitant]
  5. HUMALOG [Concomitant]
  6. SYNTHROID [Concomitant]
  7. COREG [Concomitant]
  8. NITROGLYCERIN [Concomitant]
  9. HYDROCHLOROTHIAZIDE [Concomitant]
  10. PREMARIN [Concomitant]
  11. ZOCOR [Concomitant]
  12. ASPIRIN [Concomitant]
  13. DIOVAN [Concomitant]
  14. METHOTREXATE [Concomitant]
  15. XALATAN [Concomitant]
  16. COLACE [Concomitant]
  17. VITAMINS [Concomitant]

REACTIONS (2)
  - BLADDER SPASM [None]
  - URINARY RETENTION [None]
